FAERS Safety Report 9314123 (Version 2)
Quarter: 2013Q2

REPORT INFORMATION
  Report Type: Spontaneous
  Country: US (occurrence: US)
  Receive Date: 20130529
  Receipt Date: 20130605
  Transmission Date: 20140414
  Serious: Yes (Hospitalization)
  Sender: FDA-Public Use
  Company Number: US-JNJFOC-20130508515

PATIENT
  Age: 24 Year
  Sex: Female

DRUGS (6)
  1. INVEGA SUSTENNA [Suspect]
     Indication: SCHIZOPHRENIA
     Route: 030
     Dates: start: 20130228
  2. PROZAC [Concomitant]
     Indication: DEPRESSION
     Route: 048
  3. LITHIUM [Concomitant]
     Route: 048
  4. CLOZAPINE [Concomitant]
     Route: 048
  5. HALDOL [Concomitant]
     Dosage: AS NEEDED
     Route: 030
  6. ATIVAN [Concomitant]
     Dosage: AS NEEDED
     Route: 030

REACTIONS (1)
  - Agitation [Not Recovered/Not Resolved]
